FAERS Safety Report 5936378-7 (Version None)
Quarter: 2008Q4

REPORT INFORMATION
  Report Type: 
  Country: None (occurrence: None)
  Receive Date: 20081029
  Receipt Date: 20081029
  Transmission Date: 20090506
  Serious: Yes (Life-Threatening, Hospitalization)
  Sender: FDA-Public Use
  Company Number: None

PATIENT
  Sex: Female
  Weight: 77.1 kg

DRUGS (8)
  1. IBANDRONATE SODIUM [Suspect]
     Indication: OSTEOPOROSIS POSTMENOPAUSAL
     Dosage: 150 MG ONCE MONTHLY PO
     Route: 048
     Dates: start: 20080701, end: 20080901
  2. ADVAIR DISKUS 100/50 [Concomitant]
  3. COREG [Concomitant]
  4. HYDROCHLOROTHIAZIDE [Concomitant]
  5. LOVENOX [Concomitant]
  6. ZOSYN [Concomitant]
  7. PROZAC [Concomitant]
  8. ZOCOR [Concomitant]

REACTIONS (4)
  - ANAEMIA [None]
  - DUODENAL ULCER [None]
  - FATIGUE [None]
  - GASTRIC ULCER [None]
